FAERS Safety Report 11692469 (Version 1)
Quarter: 2015Q4

REPORT INFORMATION
  Report Type: Report from Study
  Country: CA (occurrence: CA)
  Receive Date: 20151103
  Receipt Date: 20151103
  Transmission Date: 20160304
  Serious: Yes (Other)
  Sender: FDA-Public Use
  Company Number: CA-ASTRAZENECA-2015SF05272

PATIENT
  Age: 68 Year
  Sex: Male

DRUGS (4)
  1. VENLAFAXINE RX [Concomitant]
  2. ZOLADEX LA [Suspect]
     Active Substance: GOSERELIN ACETATE
     Indication: PROSTATE CANCER
     Route: 058
     Dates: start: 20150513
  3. VALSARTAN. [Concomitant]
     Active Substance: VALSARTAN
  4. VIMOVO [Interacting]
     Active Substance: ESOMEPRAZOLE MAGNESIUM\NAPROXEN
     Route: 048

REACTIONS (7)
  - Nightmare [Unknown]
  - Fall [Unknown]
  - Injection site haemorrhage [Unknown]
  - Drug interaction [Unknown]
  - Ligament sprain [Unknown]
  - Contusion [Unknown]
  - Eye contusion [Unknown]
